FAERS Safety Report 8025494-4 (Version None)
Quarter: 2011Q4

REPORT INFORMATION
  Report Type: 
  Country: None (occurrence: None)
  Receive Date: 20111130
  Receipt Date: 20110707
  Transmission Date: 20120403
  Serious: Yes (Hospitalization)
  Sender: FDA-Public Use
  Company Number: 2011002769

PATIENT
  Age: 20 Year
  Sex: Female
  Weight: 92.9874 kg

DRUGS (1)
  1. TRISENOX [Suspect]
     Indication: ACUTE PROMYELOCYTIC LEUKAEMIA
     Dosage: INTRAVENOUS DRIP
     Route: 041
     Dates: start: 20110401, end: 20110501

REACTIONS (4)
  - VOMITING [None]
  - NAUSEA [None]
  - DECREASED APPETITE [None]
  - ABDOMINAL PAIN [None]
